FAERS Safety Report 25596704 (Version 1)
Quarter: 2025Q3

REPORT INFORMATION
  Report Type: Spontaneous
  Country: EU (occurrence: EU)
  Receive Date: 20250723
  Receipt Date: 20250723
  Transmission Date: 20251021
  Serious: Yes (Other)
  Sender: STRIDES
  Company Number: EU-STRIDES ARCOLAB LIMITED-2025SP009140

PATIENT
  Age: 55 Year
  Sex: Male

DRUGS (3)
  1. PREDNISOLONE [Suspect]
     Active Substance: PREDNISOLONE
     Indication: Retroperitoneal fibrosis
     Route: 048
  2. PREDNISOLONE [Suspect]
     Active Substance: PREDNISOLONE
     Route: 048
  3. PEMBROLIZUMAB [Concomitant]
     Active Substance: PEMBROLIZUMAB
     Indication: Transitional cell cancer of the renal pelvis and ureter
     Route: 065

REACTIONS (2)
  - Disease progression [Unknown]
  - Off label use [Unknown]
